FAERS Safety Report 5485843-8 (Version None)
Quarter: 2007Q4

REPORT INFORMATION
  Report Type: 
  Country: None (occurrence: None)
  Receive Date: 20071015
  Receipt Date: 20071010
  Transmission Date: 20080405
  Serious: Yes (Death)
  Sender: FDA-Public Use
  Company Number: US-SANOFI-SYNTHELABO-F01200701252

PATIENT
  Sex: Male
  Weight: 77.1 kg

DRUGS (10)
  1. REGLAN [Concomitant]
  2. ZOFRAN [Concomitant]
  3. ATIVAN [Concomitant]
  4. PROCRIT [Concomitant]
  5. VICODIN [Concomitant]
  6. RADIATION [Concomitant]
     Dosage: TOTAL DOSE: 5040 CGY, NUMBER OF FRACTIONS: 25, NUMBER OF ELASPSED DAYS: 41
     Dates: end: 20070130
  7. BEVACIZUMAB [Suspect]
     Route: 042
     Dates: start: 20070711, end: 20070711
  8. FLUOROURACIL [Suspect]
     Dosage: 400 MG/M2 IV BOLUS ON D1 THEN 2.4 G/M2 AS CONTINUOUS INFUSION OVER 46 H
     Route: 042
     Dates: start: 20070712, end: 20070713
  9. LEUCOVORIN [Suspect]
     Route: 042
     Dates: start: 20070711, end: 20070711
  10. OXALIPLATIN [Suspect]
     Indication: RECTAL CANCER
     Route: 042
     Dates: start: 20070711, end: 20070711

REACTIONS (4)
  - ANAL FISTULA [None]
  - GASTROINTESTINAL ANASTOMOTIC LEAK [None]
  - LOWER GASTROINTESTINAL HAEMORRHAGE [None]
  - RECTAL ABSCESS [None]
